FAERS Safety Report 24977214 (Version 5)
Quarter: 2025Q4

REPORT INFORMATION
  Report Type: Spontaneous
  Country: CA (occurrence: CA)
  Receive Date: 20250217
  Receipt Date: 20251020
  Transmission Date: 20260119
  Serious: Yes (Other)
  Sender: CELLTRION
  Company Number: CA-PFIZER INC-202400079881

PATIENT

DRUGS (18)
  1. INFLIXIMAB [Suspect]
     Active Substance: INFLIXIMAB
     Indication: Colitis ulcerative
     Dosage: 10 MG/KG
     Route: 042
  2. INFLIXIMAB [Suspect]
     Active Substance: INFLIXIMAB
     Dosage: 10 MG/KG
     Route: 042
  3. INFLIXIMAB [Suspect]
     Active Substance: INFLIXIMAB
     Dosage: 10 MG/KG
     Route: 042
  4. INFLIXIMAB [Suspect]
     Active Substance: INFLIXIMAB
     Dosage: 10 MG/KG
     Route: 042
  5. INFLIXIMAB [Suspect]
     Active Substance: INFLIXIMAB
     Dosage: 1093 MG
     Route: 042
  6. INFLIXIMAB [Suspect]
     Active Substance: INFLIXIMAB
     Dosage: 1079 MG
     Route: 042
  7. INFLIXIMAB [Suspect]
     Active Substance: INFLIXIMAB
     Dosage: 1079 MG
     Route: 042
  8. INFLIXIMAB [Suspect]
     Active Substance: INFLIXIMAB
     Dosage: 1079 MG
     Route: 042
  9. INFLIXIMAB [Suspect]
     Active Substance: INFLIXIMAB
     Dosage: 10 MG/KG
     Route: 042
  10. INFLECTRA [Suspect]
     Active Substance: INFLIXIMAB-DYYB
     Indication: Colitis ulcerative
     Dosage: 10 MG/KG, EVERY 4 WEEKS
     Route: 042
     Dates: start: 20240708
  11. INFLECTRA [Suspect]
     Active Substance: INFLIXIMAB-DYYB
     Dosage: 10 MG/KG, EVERY 4 WEEKS
     Route: 042
     Dates: start: 20240905
  12. INFLECTRA [Suspect]
     Active Substance: INFLIXIMAB-DYYB
     Dosage: 10 MG/KG, (1000 MG) AFTER 8 WEEKS (PRESCRIBED EVERY 4 WEEKS)
     Route: 042
     Dates: start: 20241031
  13. INFLECTRA [Suspect]
     Active Substance: INFLIXIMAB-DYYB
     Dosage: 10 MG/KG, (1055 MG), 3 WEEKS AND 6 DAYS (PRESCRIBED EVERY 4 WEEKS)
     Route: 042
     Dates: start: 20241224
  14. INFLECTRA [Suspect]
     Active Substance: INFLIXIMAB-DYYB
     Dosage: 10 MG/KG (1055 MG), 3 WEEKS AND 6 DAYS (PRESCRIBED EVERY 4 WEEKS)
     Route: 042
     Dates: start: 20250122
  15. INFLECTRA [Suspect]
     Active Substance: INFLIXIMAB-DYYB
     Dosage: 1079 MG, 7 WEEKS AND 2 DAYS (10 MG/KG, EVERY 4 WEEKS)
     Route: 042
     Dates: start: 20250314
  16. INFLECTRA [Suspect]
     Active Substance: INFLIXIMAB-DYYB
     Dosage: 1079 MG, 7 WEEKS AND 2 DAYS (10 MG/KG, EVERY 4 WEEKS)
     Route: 042
     Dates: start: 20250314
  17. INFLECTRA [Suspect]
     Active Substance: INFLIXIMAB-DYYB
     Dosage: 1079 MG, 7 WEEKS AND 2 DAYS (10 MG/KG, EVERY 4 WEEKS)
     Route: 042
     Dates: start: 20250314
  18. INFLECTRA [Suspect]
     Active Substance: INFLIXIMAB-DYYB
     Dosage: 1093 MG, 4 WEEKS AND 4 DAYS (10MG/KG EVERY 4 WEEK)
     Route: 042
     Dates: start: 20250415

REACTIONS (5)
  - Hernia [Not Recovered/Not Resolved]
  - Condition aggravated [Not Recovered/Not Resolved]
  - Off label use [Not Recovered/Not Resolved]
  - Intentional product use issue [Unknown]
  - Overdose [Unknown]

NARRATIVE: CASE EVENT DATE: 20240101
